FAERS Safety Report 5778399-3 (Version None)
Quarter: 2008Q2

REPORT INFORMATION
  Report Type: 
  Country: None (occurrence: None)
  Receive Date: 20080618
  Receipt Date: 20080618
  Transmission Date: 20081010
  Serious: Yes (Hospitalization)
  Sender: FDA-Public Use
  Company Number: None

PATIENT
  Age: 64 Year
  Sex: Male
  Weight: 70.5 kg

DRUGS (1)
  1. ACETAZOLAMIDE [Suspect]
     Indication: GLAUCOMA
     Dosage: 250 MG QID PO
     Route: 048
     Dates: start: 20080321, end: 20080405

REACTIONS (11)
  - ANAEMIA [None]
  - ASTHENIA [None]
  - CONFUSIONAL STATE [None]
  - DECREASED APPETITE [None]
  - DISORIENTATION [None]
  - ENERGY INCREASED [None]
  - HYPERSOMNIA [None]
  - METABOLIC ACIDOSIS [None]
  - PARAESTHESIA [None]
  - RENAL FAILURE [None]
  - SEDATION [None]
